FAERS Safety Report 4714455-6 (Version None)
Quarter: 2005Q3

REPORT INFORMATION
  Report Type: 
  Country: None (occurrence: None)
  Receive Date: 20050712
  Receipt Date: 20050701
  Transmission Date: 20060218
  Serious: Yes (Hospitalization)
  Sender: FDA-Public Use
  Company Number: TUK2005A00047

PATIENT
  Age: 64 Year
  Sex: Female

DRUGS (9)
  1. ACTOS [Suspect]
     Indication: DIABETES MELLITUS
     Dosage: 15 MG ORAL
     Route: 048
     Dates: end: 20050610
  2. WARFARIN SODIUM [Concomitant]
  3. SPIRONOLACTONE [Concomitant]
  4. DOTHIEPIN HYDROCHLORIDE [Concomitant]
  5. DIGOXIN [Concomitant]
  6. GLICLAZIDE (GLICLAZIDE) [Concomitant]
  7. METFORMIN HCL [Concomitant]
  8. ACETAMINOPHEN [Concomitant]
  9. LISINOPRIL [Concomitant]

REACTIONS (5)
  - ASCITES [None]
  - CARDIAC FAILURE [None]
  - DYSPNOEA EXACERBATED [None]
  - OEDEMA PERIPHERAL [None]
  - VENOUS PRESSURE JUGULAR INCREASED [None]
